FAERS Safety Report 9023042 (Version 1)
Quarter: 2013Q1

REPORT INFORMATION
  Report Type: Spontaneous
  Country: None (occurrence: US)
  Receive Date: 20130120
  Receipt Date: 20130120
  Transmission Date: 20140127
  Serious: No
  Sender: FDA-Public Use
  Company Number: US-ALLERGAN-1215482US

PATIENT
  Sex: Male

DRUGS (2)
  1. BOTOX? [Suspect]
     Indication: MIGRAINE
     Dosage: 15 UNITS, SINGLE
     Route: 030
     Dates: start: 20121101, end: 20121101
  2. BOTOX? [Suspect]
     Dosage: UNK UNK, SINGLE
     Route: 030
     Dates: start: 201102, end: 201102

REACTIONS (3)
  - Throat tightness [Unknown]
  - Headache [Unknown]
  - Vision blurred [Unknown]
